FAERS Safety Report 4486119-8 (Version None)
Quarter: 2004Q4

REPORT INFORMATION
  Report Type: 
  Country: None (occurrence: None)
  Receive Date: 20041026
  Receipt Date: 20041020
  Transmission Date: 20050328
  Serious: Yes (Other)
  Sender: FDA-Public Use
  Company Number: GB-MERCK-0410GBR00246

PATIENT
  Age: 53 Year
  Sex: Female
  Weight: 70 kg

DRUGS (4)
  1. VIOXX [Suspect]
     Indication: PAIN
     Route: 048
     Dates: start: 20040901, end: 20041004
  2. TRIMETHOPRIM [Concomitant]
     Indication: SEPSIS
     Route: 065
  3. RIFAMPIN [Concomitant]
     Indication: SEPSIS
     Route: 048
     Dates: start: 20040601
  4. ISONIAZID [Concomitant]
     Route: 048
     Dates: start: 20040601

REACTIONS (2)
  - CEREBROVASCULAR ACCIDENT [None]
  - MYOCARDIAL INFARCTION [None]
